FAERS Safety Report 7180290-5 (Version None)
Quarter: 2010Q4

REPORT INFORMATION
  Report Type: 
  Country: None (occurrence: None)
  Receive Date: 20101123
  Receipt Date: 20100827
  Transmission Date: 20110411
  Serious: No
  Sender: FDA-Public Use
  Company Number: 017942

PATIENT
  Sex: Female
  Weight: 59 kg

DRUGS (6)
  1. CIMZIA [Suspect]
     Indication: CROHN'S DISEASE
     Dosage: (TWO SHOTS EVERY MONTH SUBCUTANEOUS) ; (TWO SHOTS EVERY MONTH SUBCUTANEOUS)
     Route: 058
     Dates: start: 20100101, end: 20100601
  2. CIMZIA [Suspect]
     Indication: CROHN'S DISEASE
     Dosage: (TWO SHOTS EVERY MONTH SUBCUTANEOUS) ; (TWO SHOTS EVERY MONTH SUBCUTANEOUS)
     Route: 058
     Dates: start: 20100721
  3. ASACOL [Concomitant]
  4. IMURAN [Concomitant]
  5. PRENATAL VITAMINS /01549301/ [Concomitant]
  6. EFFEXOR XR [Concomitant]

REACTIONS (3)
  - FEELING HOT [None]
  - PREGNANCY [None]
  - VOMITING [None]
